FAERS Safety Report 6971439-5 (Version None)
Quarter: 2010Q3

REPORT INFORMATION
  Report Type: 
  Country: None (occurrence: None)
  Receive Date: 20100908
  Receipt Date: 20100902
  Transmission Date: 20110219
  Serious: Yes (Death)
  Sender: FDA-Public Use
  Company Number: US-ASTRAZENECA-2010SE41338

PATIENT
  Age: 89 Year
  Sex: Female

DRUGS (1)
  1. SEROQUEL [Suspect]
     Indication: DEMENTIA ALZHEIMER'S TYPE
     Dosage: TWO TIMES A DAY
     Route: 048
     Dates: start: 20060101, end: 20100101

REACTIONS (3)
  - FALL [None]
  - ORGAN FAILURE [None]
  - WHEELCHAIR USER [None]
